FAERS Safety Report 15934088 (Version 1)
Quarter: 2019Q1

REPORT INFORMATION
  Report Type: Spontaneous
  Country: CH (occurrence: CH)
  Receive Date: 20190207
  Receipt Date: 20190207
  Transmission Date: 20190417
  Serious: Yes (Hospitalization, Other)
  Sender: FDA-Public Use
  Company Number: CH-ELI_LILLY_AND_COMPANY-CH201901015361

PATIENT
  Sex: Male

DRUGS (23)
  1. ZYPREXA [Suspect]
     Active Substance: OLANZAPINE
     Dosage: 15 MG, DAILY
     Route: 048
     Dates: start: 20190109
  2. TEMESTA EXPIDET [Concomitant]
     Active Substance: LORAZEPAM
     Dosage: UNK
  3. ESOMEPRAZOLE SODIUM. [Concomitant]
     Active Substance: ESOMEPRAZOLE SODIUM
     Dosage: UNK
  4. SALBUTAMOL [Concomitant]
     Active Substance: ALBUTEROL
     Dosage: AS NECESSARY
  5. PURSANA [Concomitant]
     Active Substance: FIG FRUIT OIL\SORBITOL
     Dosage: UNK
  6. ZYPREXA [Suspect]
     Active Substance: OLANZAPINE
     Indication: PRODUCT USED FOR UNKNOWN INDICATION
     Dosage: UNK UNK, UNKNOWN
     Route: 065
     Dates: end: 20181123
  7. LITHIUM CARBONATE. [Suspect]
     Active Substance: LITHIUM CARBONATE
     Indication: PRODUCT USED FOR UNKNOWN INDICATION
     Dosage: 16.2 MMOL, EACH MORNING
     Route: 048
     Dates: start: 2006
  8. MOVCOL [Concomitant]
     Dosage: UNK
  9. EXCIPIAL U [Concomitant]
     Active Substance: UREA
     Dosage: UNK
  10. NICORETTE INALADOR [Concomitant]
     Dosage: AS NECESSARY
  11. EUTHYROX [Concomitant]
     Active Substance: LEVOTHYROXINE SODIUM
     Dosage: UNK
  12. ULTIBRO BREEZHALER [Concomitant]
     Active Substance: GLYCOPYRRONIUM\INDACATEROL
     Dosage: UNK
  13. ANGINA MCC [Concomitant]
     Active Substance: CETYLPYRIDINIUM CHLORIDE\LEVOMENTHOL\LIDOCAINE HYDROCHLORIDE
     Dosage: AS NECESSARY
  14. TORA-DOL [Concomitant]
     Active Substance: KETOROLAC TROMETHAMINE
     Dosage: AS NECESSARY
  15. DALMADORM [Concomitant]
     Active Substance: FLURAZEPAM HYDROCHLORIDE
     Dosage: UNK
  16. CO-DAFALGAN [Concomitant]
     Active Substance: ACETAMINOPHEN\CODEINE PHOSPHATE
     Dosage: UNK
  17. BIPERIDEN HYDROCHLORIDE [Concomitant]
     Active Substance: BIPERIDEN HYDROCHLORIDE
     Dosage: AS NECESSARY
  18. URISPAS [Concomitant]
     Active Substance: FLAVOXATE HYDROCHLORIDE
     Dosage: AS NECESSARY
  19. MAGALDRATE [Concomitant]
     Active Substance: MAGALDRATE
     Dosage: AS NECESSARY
  20. ZYPREXA [Suspect]
     Active Substance: OLANZAPINE
     Dosage: 10 MG, DAILY
     Route: 048
     Dates: start: 20190104, end: 20190109
  21. LITHIUM CARBONATE. [Suspect]
     Active Substance: LITHIUM CARBONATE
     Dosage: 10.8 MMOL, EACH EVENING
     Route: 048
     Dates: start: 2006
  22. ENTUMINE [Concomitant]
     Active Substance: CLOTHIAPINE
     Dosage: UNK
     Dates: start: 20181123, end: 20190104
  23. LAXOBERON [Concomitant]
     Active Substance: SODIUM PICOSULFATE
     Dosage: UNK

REACTIONS (8)
  - Weight decreased [Unknown]
  - Decreased appetite [Unknown]
  - Asthenia [Unknown]
  - Salivary hypersecretion [Not Recovered/Not Resolved]
  - Cognitive disorder [Not Recovered/Not Resolved]
  - Parkinsonism [Not Recovered/Not Resolved]
  - Treatment noncompliance [Unknown]
  - Malignant neoplasm progression [Unknown]
